FAERS Safety Report 14126747 (Version 1)
Quarter: 2017Q4

REPORT INFORMATION
  Report Type: Spontaneous
  Country: SE (occurrence: SE)
  Receive Date: 20171025
  Receipt Date: 20171025
  Transmission Date: 20180321
  Serious: Yes (Hospitalization)
  Sender: FDA-Public Use
  Company Number: SE-ASTRAZENECA-2017SF07627

PATIENT
  Age: 78 Year
  Sex: Male

DRUGS (17)
  1. SPIRONOLACTONE. [Concomitant]
     Active Substance: SPIRONOLACTONE
  2. ENALAPRIL [Concomitant]
     Active Substance: ENALAPRIL
  3. OMEPRAZOLE. [Concomitant]
     Active Substance: OMEPRAZOLE
  4. ALVEDON [Concomitant]
     Active Substance: ACETAMINOPHEN
  5. TROMBYL [Concomitant]
     Active Substance: ASPIRIN
  6. ATORVASTATIN [Concomitant]
     Active Substance: ATORVASTATIN
  7. OXASCAND [Concomitant]
     Active Substance: OXAZEPAM
  8. METFORMIN [Concomitant]
     Active Substance: METFORMIN HYDROCHLORIDE
  9. SELOKENZOC [Concomitant]
     Active Substance: METOPROLOL SUCCINATE
  10. STILNOCT [Concomitant]
     Active Substance: ZOLPIDEM TARTRATE
  11. FINASTERIDE. [Concomitant]
     Active Substance: FINASTERIDE
  12. SAROTEN [Concomitant]
     Active Substance: AMITRIPTYLINE
  13. METHADONE [Concomitant]
     Active Substance: METHADONE HYDROCHLORIDE
  14. BRILIQUE [Suspect]
     Active Substance: TICAGRELOR
     Indication: ACUTE MYOCARDIAL INFARCTION
     Route: 048
     Dates: start: 20170629, end: 20171006
  15. IMDUR [Concomitant]
     Active Substance: ISOSORBIDE MONONITRATE
  16. DOLCONTIN [Concomitant]
     Active Substance: MORPHINE
  17. MORPHINE [Concomitant]
     Active Substance: MORPHINE

REACTIONS (1)
  - Anxiety [Recovered/Resolved]

NARRATIVE: CASE EVENT DATE: 2017
